FAERS Safety Report 15591638 (Version 3)
Quarter: 2018Q4

REPORT INFORMATION
  Report Type: Spontaneous
  Country: KR (occurrence: KR)
  Receive Date: 20181107
  Receipt Date: 20181210
  Transmission Date: 20190205
  Serious: Yes (Death, Other)
  Sender: FDA-Public Use
  Company Number: KR-PFIZER INC-2018447348

PATIENT
  Age: 55 Year
  Sex: Female

DRUGS (4)
  1. ZOMEBON [Suspect]
     Active Substance: ZOLEDRONIC ACID
     Indication: BREAST CANCER STAGE IV
     Dosage: 4 MG, CYCLIC (EVERY 4 WEEKS)
     Route: 042
     Dates: start: 20171128
  2. FASLODEX [Suspect]
     Active Substance: FULVESTRANT
     Indication: BREAST CANCER STAGE IV
     Dosage: 500 MG, CYCLIC (EVERY 4 WEEKS)
     Route: 058
     Dates: start: 20171113
  3. IBRANCE [Suspect]
     Active Substance: PALBOCICLIB
     Indication: BREAST CANCER STAGE IV
     Dosage: 125 MG, 1X/DAY
     Route: 048
     Dates: start: 20171113
  4. IBRANCE [Suspect]
     Active Substance: PALBOCICLIB
     Dosage: 100 MG, 1X/DAY
     Route: 048
     Dates: start: 20171211

REACTIONS (5)
  - Shock [Unknown]
  - Neoplasm progression [Fatal]
  - Multiple organ dysfunction syndrome [Fatal]
  - Cardiac arrest [Fatal]
  - Asthenia [Unknown]

NARRATIVE: CASE EVENT DATE: 201712
